FAERS Safety Report 13016317 (Version 5)
Quarter: 2019Q1

REPORT INFORMATION
  Report Type: Spontaneous
  Country: FR (occurrence: FR)
  Receive Date: 20161212
  Receipt Date: 20190205
  Transmission Date: 20190417
  Serious: Yes (Death, Other)
  Sender: FDA-Public Use
  Company Number: FR-AUROBINDO-AUR-APL-2016-15185

PATIENT

DRUGS (2)
  1. GLIMEPIRIDE. [Suspect]
     Active Substance: GLIMEPIRIDE
     Indication: TYPE 2 DIABETES MELLITUS
     Dosage: UNK
     Route: 065
  2. COTRIMOXAZOLE [Suspect]
     Active Substance: SULFAMETHOXAZOLE\TRIMETHOPRIM
     Indication: STAPHYLOCOCCAL INFECTION
     Dosage: UNK
     Route: 065
     Dates: start: 201508

REACTIONS (8)
  - Malaise [Fatal]
  - Coma [Fatal]
  - Gait disturbance [Fatal]
  - Renal failure [Unknown]
  - Hypoglycaemic coma [Fatal]
  - Coma scale abnormal [Fatal]
  - Drug interaction [Fatal]
  - Blood glucose decreased [Fatal]
